FAERS Safety Report 4513300-1 (Version None)
Quarter: 2004Q4

REPORT INFORMATION
  Report Type: 
  Country: None (occurrence: None)
  Receive Date: 20041130
  Receipt Date: 20040405
  Transmission Date: 20050328
  Serious: Yes (Life-Threatening)
  Sender: FDA-Public Use
  Company Number: US-BRISTOL-MYERS SQUIBB COMPANY-12551271

PATIENT
  Age: 55 Year
  Sex: Male

DRUGS (6)
  1. ERBITUX [Suspect]
     Indication: COLON CANCER METASTATIC
     Dosage: 400 MG/M2 (680 MG), 50 MG OVER 2 HOURS
     Route: 042
     Dates: start: 20040316, end: 20040316
  2. TYLENOL (CAPLET) [Concomitant]
     Indication: PREMEDICATION
  3. BENADRYL [Concomitant]
     Indication: PREMEDICATION
  4. NEXIUM [Concomitant]
  5. VICODIN [Concomitant]
  6. IMODIUM [Concomitant]

REACTIONS (1)
  - HYPERSENSITIVITY [None]
